FAERS Safety Report 6590506-1 (Version None)
Quarter: 2010Q1

REPORT INFORMATION
  Report Type: 
  Country: None (occurrence: None)
  Receive Date: 20100219
  Receipt Date: 20100215
  Transmission Date: 20100710
  Serious: Yes (Hospitalization)
  Sender: FDA-Public Use
  Company Number: FR-ROCHE-685552

PATIENT
  Age: 59 Year
  Sex: Male

DRUGS (1)
  1. VALGANCICLOVIR HCL [Suspect]
     Indication: CYTOMEGALOVIRUS INFECTION
     Route: 065

REACTIONS (2)
  - BILIARY ANASTOMOSIS COMPLICATION [None]
  - CHOLANGITIS [None]
